FAERS Safety Report 9702717 (Version 1)
Quarter: 2013Q4

REPORT INFORMATION
  Report Type: Spontaneous
  Country: BE (occurrence: BE)
  Receive Date: 20131121
  Receipt Date: 20131121
  Transmission Date: 20140711
  Serious: Yes (Life-Threatening, Hospitalization)
  Sender: FDA-Public Use
  Company Number: BE-B.I. PHARMACEUTICALS,INC./RIDGEFIELD-2013-BI-38112BL

PATIENT
  Age: 91 Year
  Sex: Male
  Weight: 65 kg

DRUGS (8)
  1. PRADAXA [Suspect]
     Indication: ATRIAL FIBRILLATION
     Dosage: DOSE PER APPLICATION: 110
     Route: 048
     Dates: start: 201307
  2. BISOPROLOL [Concomitant]
     Indication: HYPERTENSION
     Dosage: 10 MG
     Route: 048
  3. BISOPROLOL [Concomitant]
     Indication: ATRIAL FIBRILLATION
  4. BROMAZEPAM [Concomitant]
     Indication: INSOMNIA
     Dosage: 6 MG
     Route: 048
  5. BURINEX [Concomitant]
     Indication: OEDEMA PERIPHERAL
     Dosage: 0.5 MG
     Route: 048
     Dates: start: 201307
  6. DAFALGAN [Concomitant]
     Indication: PAIN
     Route: 048
  7. VASEXTEN [Concomitant]
     Indication: HYPERTENSION
     Dosage: DOSE PER APPLICATION :10
     Route: 048
     Dates: start: 201307
  8. D-CURE [Concomitant]
     Indication: PROPHYLAXIS
     Route: 048
     Dates: start: 201307

REACTIONS (7)
  - Gastrointestinal haemorrhage [Not Recovered/Not Resolved]
  - Rectal haemorrhage [Not Recovered/Not Resolved]
  - Anaemia [Not Recovered/Not Resolved]
  - Gastrointestinal angiodysplasia [Not Recovered/Not Resolved]
  - Tumour ulceration [Not Recovered/Not Resolved]
  - Tumour necrosis [Not Recovered/Not Resolved]
  - Intestinal mass [Not Recovered/Not Resolved]
